FAERS Safety Report 4542281-X (Version None)
Quarter: 2004Q4

REPORT INFORMATION
  Report Type: 
  Country: None (occurrence: None)
  Receive Date: 20041227
  Receipt Date: 20041215
  Transmission Date: 20050328
  Serious: Yes (Hospitalization)
  Sender: FDA-Public Use
  Company Number: 2004113958

PATIENT
  Age: 92 Year
  Sex: Male

DRUGS (8)
  1. DETROL LA [Suspect]
     Indication: BLADDER DISORDER
     Dosage: 4 MG (4 MG, QD INTERVAL: EVERY DAY), ORAL
     Route: 048
     Dates: start: 20041201
  2. TAMSULOSIN HYDROCHLORIDE (TAMSULOSIN HYDROCHLORIDE) [Suspect]
     Indication: PROSTATE CANCER
     Dosage: (INTERVAL: EVERY DAY)
     Dates: start: 20040501
  3. METOPROLOL TARTRATE [Concomitant]
  4. SERETIDE MITE (FLUTICASONE PROPIONATE, SALMETEROL XINAFOATE) [Concomitant]
  5. SALBUTAMOL (SALBUTAMOL) [Concomitant]
  6. MOMETASONE FUROATE [Concomitant]
  7. LORAZEPAM [Concomitant]
  8. LATANOPROST [Concomitant]

REACTIONS (4)
  - DRUG INTERACTION [None]
  - FACIAL BONES FRACTURE [None]
  - FALL [None]
  - RIB FRACTURE [None]
